FAERS Safety Report 24140134 (Version 1)
Quarter: 2024Q3

REPORT INFORMATION
  Report Type: Spontaneous
  Country: IN (occurrence: IN)
  Receive Date: 20240726
  Receipt Date: 20240726
  Transmission Date: 20241016
  Serious: Yes (Life-Threatening, Hospitalization, Other)
  Sender: CIPLA
  Company Number: IN-MLMSERVICE-20240705-PI124770-00130-1

PATIENT

DRUGS (3)
  1. TENOFOVIR [Suspect]
     Active Substance: TENOFOVIR
     Indication: Antiretroviral therapy
     Dosage: UNK
     Route: 065
  2. DOLUTEGRAVIR [Concomitant]
     Active Substance: DOLUTEGRAVIR
     Indication: Antiretroviral therapy
     Dosage: UNK
     Route: 065
  3. LAMOTRIGINE [Concomitant]
     Active Substance: LAMOTRIGINE
     Indication: Antiretroviral therapy
     Dosage: UNK
     Route: 065

REACTIONS (7)
  - Renal failure [Not Recovered/Not Resolved]
  - Metabolic acidosis [Recovered/Resolved]
  - Hypouricaemia [Recovered/Resolved]
  - Hyperparathyroidism secondary [Recovering/Resolving]
  - Hypophosphataemia [Recovered/Resolved]
  - Hip fracture [Recovering/Resolving]
  - Osteomalacia [Unknown]
